FAERS Safety Report 6888966-1 (Version None)
Quarter: 2010Q3

REPORT INFORMATION
  Report Type: 
  Country: None (occurrence: None)
  Receive Date: 20100730
  Receipt Date: 20071206
  Transmission Date: 20110219
  Serious: No
  Sender: FDA-Public Use
  Company Number: US-PFIZER INC-2006020274

PATIENT
  Sex: Male
  Weight: 104.33 kg

DRUGS (9)
  1. LIPITOR [Suspect]
     Indication: PROPHYLAXIS
     Route: 048
     Dates: start: 20010101, end: 20071101
  2. LIPITOR [Suspect]
     Indication: BLOOD TRIGLYCERIDES
  3. LIPITOR [Suspect]
     Indication: BLOOD CHOLESTEROL INCREASED
  4. LOPID [Suspect]
     Indication: BLOOD CHOLESTEROL
     Route: 048
     Dates: end: 20030101
  5. LOPID [Suspect]
     Indication: CARDIAC DISORDER
  6. TRICOR [Suspect]
     Indication: BLOOD TRIGLYCERIDES INCREASED
     Dates: start: 20060101, end: 20070101
  7. LOTREL [Concomitant]
  8. ACTOS [Concomitant]
  9. METFORMIN HCL [Concomitant]

REACTIONS (2)
  - BLOOD TRIGLYCERIDES INCREASED [None]
  - MYALGIA [None]
